FAERS Safety Report 24761630 (Version 1)
Quarter: 2024Q4

REPORT INFORMATION
  Report Type: Spontaneous
  Country: CN (occurrence: CN)
  Receive Date: 20241220
  Receipt Date: 20241220
  Transmission Date: 20250114
  Serious: Yes (Hospitalization, Other)
  Sender: MEITHEAL PHARMACEUTICALS
  Company Number: CN-MEITHEAL-2024MPLIT00450

PATIENT
  Age: 47 Year
  Sex: Female

DRUGS (14)
  1. CYTARABINE [Suspect]
     Active Substance: CYTARABINE
     Indication: B-cell type acute leukaemia
     Dosage: 3 CYCLES
     Route: 065
     Dates: start: 20161028
  2. CYTARABINE [Suspect]
     Active Substance: CYTARABINE
     Indication: Acute myeloid leukaemia
     Route: 065
     Dates: start: 20180830
  3. CYTARABINE [Suspect]
     Active Substance: CYTARABINE
     Route: 065
     Dates: start: 20181213
  4. CYTARABINE [Suspect]
     Active Substance: CYTARABINE
     Dosage: D1-4
     Route: 065
     Dates: start: 20190107
  5. CYTARABINE [Suspect]
     Active Substance: CYTARABINE
     Dosage: D1-4
     Route: 065
     Dates: start: 20190215
  6. CYTARABINE [Suspect]
     Active Substance: CYTARABINE
     Dosage: LOW DOSE
     Route: 065
     Dates: start: 20181229
  7. IDARUBICIN [Suspect]
     Active Substance: IDARUBICIN
     Indication: B-cell type acute leukaemia
     Dosage: 1 COURSE
     Route: 065
     Dates: start: 20160922
  8. CYCLOPHOSPHAMIDE [Suspect]
     Active Substance: CYCLOPHOSPHAMIDE
     Indication: B-cell type acute leukaemia
     Dosage: 1 COURSE
     Route: 065
     Dates: start: 20160922
  9. VINCRISTINE [Suspect]
     Active Substance: VINCRISTINE
     Indication: B-cell type acute leukaemia
     Dosage: 1 COURSE
     Route: 065
     Dates: start: 20160922
  10. DEXAMETHASONE [Suspect]
     Active Substance: DEXAMETHASONE
     Indication: B-cell type acute leukaemia
     Dosage: 1 COURSE
     Route: 065
     Dates: start: 20160922
  11. ACLARUBICIN [Suspect]
     Active Substance: ACLARUBICIN
     Indication: B-cell type acute leukaemia
     Dosage: 3 CYCLES
     Route: 065
     Dates: start: 20161028
  12. ACLARUBICIN [Suspect]
     Active Substance: ACLARUBICIN
     Route: 065
     Dates: start: 20181213
  13. METHOTREXATE [Suspect]
     Active Substance: METHOTREXATE
     Indication: B-cell type acute leukaemia
     Route: 065
  14. PEG/L-ASPARAGINASE [Suspect]
     Active Substance: PEGASPARGASE
     Indication: B-cell type acute leukaemia
     Route: 065

REACTIONS (1)
  - Acute myeloid leukaemia [Recovered/Resolved]
